FAERS Safety Report 9962212 (Version 1)
Quarter: 2014Q1

REPORT INFORMATION
  Report Type: Spontaneous
  Country: US (occurrence: US)
  Receive Date: 20140305
  Receipt Date: 20140305
  Transmission Date: 20141002
  Serious: Yes (Hospitalization, Other)
  Sender: FDA-Public Use
  Company Number: US-ROXANE LABORATORIES, INC.-2014-RO-00334RO

PATIENT
  Age: 58 Year
  Sex: Male
  Weight: 103 kg

DRUGS (19)
  1. DEXAMETHASONE [Suspect]
     Indication: PLASMA CELL MYELOMA
     Route: 048
     Dates: start: 20131105, end: 20131119
  2. ARRY-520 [Suspect]
     Indication: PLASMA CELL MYELOMA
     Route: 042
     Dates: start: 20131105, end: 20131120
  3. BORTEZOMIB [Suspect]
     Indication: PLASMA CELL MYELOMA
     Route: 042
     Dates: start: 20131105, end: 20131119
  4. PROTONIX [Concomitant]
     Route: 065
     Dates: start: 20131105
  5. ACYCLOVIR [Concomitant]
     Route: 065
     Dates: start: 20131105
  6. OXYCODONE [Concomitant]
     Route: 065
     Dates: start: 20131105
  7. ACETAMINOPHEN-HYDROCODONE [Concomitant]
     Route: 065
     Dates: start: 20131024
  8. PREDNISONE [Concomitant]
     Route: 065
     Dates: start: 20131017
  9. CRESTOR [Concomitant]
     Route: 065
  10. NIASPAN ER [Concomitant]
     Route: 065
  11. POTASSIUM CHLORIDE [Concomitant]
     Route: 065
  12. PRAZOSIN [Concomitant]
     Route: 065
  13. AMLODIPINE [Concomitant]
     Route: 065
  14. RAMIPRIL [Concomitant]
     Route: 065
  15. METOPROLOL [Concomitant]
     Route: 065
  16. NEXIUM [Concomitant]
     Route: 065
  17. HYDROMORPHONE [Concomitant]
     Route: 065
  18. ONDANSETRON [Concomitant]
     Route: 065
  19. BACTRIM DS [Concomitant]
     Route: 065
     Dates: start: 20131112

REACTIONS (4)
  - Hypertension [Recovered/Resolved]
  - Fall [Recovered/Resolved with Sequelae]
  - Pathological fracture [Recovered/Resolved with Sequelae]
  - Peripheral nerve palsy [Not Recovered/Not Resolved]
